FAERS Safety Report 6585350-5 (Version None)
Quarter: 2010Q1

REPORT INFORMATION
  Report Type: 
  Country: None (occurrence: None)
  Receive Date: 20100216
  Receipt Date: 20100216
  Transmission Date: 20100710
  Serious: No
  Sender: FDA-Public Use
  Company Number: None

PATIENT
  Sex: Male
  Weight: 87.5442 kg

DRUGS (1)
  1. TESTOSTERONE CYPIONATE - WATSON BRAND [Suspect]
     Indication: TESTICULAR DISORDER
     Dosage: 200MG/ML 1CC Q 2WKS IM
     Route: 030
     Dates: start: 20091210

REACTIONS (4)
  - FATIGUE [None]
  - MALAISE [None]
  - NO THERAPEUTIC RESPONSE [None]
  - PRODUCT SUBSTITUTION ISSUE [None]
